FAERS Safety Report 4804078-2 (Version None)
Quarter: 2005Q4

REPORT INFORMATION
  Report Type: 
  Country: None (occurrence: None)
  Receive Date: 20051020
  Receipt Date: 20041210
  Transmission Date: 20060501
  Serious: Yes (Hospitalization)
  Sender: FDA-Public Use
  Company Number: US-BOEHRINGER INGELHEIM PHARMACEUTICALS, INC.-2004-BP-13707BP

PATIENT
  Sex: Male
  Weight: 74 kg

DRUGS (12)
  1. TIPRANAVIR / RITONAVIR CAPSULES [Suspect]
     Indication: HIV INFECTION
     Dosage: TPV/R 1000/400 MG
     Route: 048
     Dates: start: 20040913
  2. VIREAD [Suspect]
     Indication: HIV INFECTION
     Route: 048
     Dates: start: 20040913
  3. FUZEON [Suspect]
     Indication: HIV INFECTION
     Route: 058
     Dates: start: 20040913
  4. FLOMAX [Concomitant]
  5. LASIX [Concomitant]
  6. ACYCLOVIR [Concomitant]
  7. SPIRONOLACTONE [Concomitant]
  8. DIGITEK [Concomitant]
  9. ALTACE [Concomitant]
  10. ALBUTEROL [Concomitant]
  11. PAXIL [Concomitant]
  12. NEURONTIN [Concomitant]

REACTIONS (9)
  - ASTHENIA [None]
  - BLOOD PRESSURE DECREASED [None]
  - CHEST PAIN [None]
  - DEHYDRATION [None]
  - DIARRHOEA [None]
  - LETHARGY [None]
  - PLEURITIC PAIN [None]
  - THERAPY NON-RESPONDER [None]
  - VOMITING [None]
